FAERS Safety Report 12748597 (Version 1)
Quarter: 2016Q3

REPORT INFORMATION
  Report Type: Other
  Country: None (occurrence: US)
  Receive Date: 20160915
  Receipt Date: 20160915
  Transmission Date: 20161109
  Serious: Yes (Other)
  Sender: FDA-Public Use
  Company Number: US-GUTHY-RENKER LLC-1057349

PATIENT
  Age: 80 Year
  Sex: Female

DRUGS (2)
  1. MEANINGFUL BEAUTY CINDY CRAWFORD ANTIOXIDANT SPF 20 UVA/UVB [Suspect]
     Active Substance: AVOBENZONE\OCTINOXATE\OCTISALATE\OXYBENZONE
     Indication: PHOTOSENSITIVITY REACTION
     Route: 061
     Dates: start: 20160519, end: 20160801
  2. UNDISCLOSED MEDICATIONS- MOSTLY CARDIAC, AND VITAMINS [Concomitant]

REACTIONS (5)
  - Wheezing [None]
  - Urticaria [Recovered/Resolved]
  - Choking [None]
  - Burning sensation [None]
  - Eye irritation [None]

NARRATIVE: CASE EVENT DATE: 20160801
